FAERS Safety Report 10418552 (Version 1)
Quarter: 2014Q2

REPORT INFORMATION
  Report Type: Spontaneous
  Country: US (occurrence: None)
  Receive Date: 20140609
  Receipt Date: 20140609
  Transmission Date: 20141212
  Serious: No
  Sender: FDA-Public Use
  Company Number: 2014TUS002275

PATIENT
  Age: 4 Decade
  Sex: Male

DRUGS (1)
  1. BRINTELLIX [Suspect]
     Indication: MAJOR DEPRESSION
     Route: 048

REACTIONS (4)
  - Aggression [None]
  - Mood swings [None]
  - Agitation [None]
  - Psychomotor hyperactivity [None]
